FAERS Safety Report 18644306 (Version 1)
Quarter: 2020Q4

REPORT INFORMATION
  Report Type: Spontaneous
  Country: BR (occurrence: BR)
  Receive Date: 20201221
  Receipt Date: 20201221
  Transmission Date: 20210114
  Serious: Yes (Other)
  Sender: FDA-Public Use
  Company Number: BR-ASTRAZENECA-2016SE82117

PATIENT
  Sex: Male

DRUGS (1)
  1. NEXIUM [Suspect]
     Active Substance: ESOMEPRAZOLE MAGNESIUM
     Dosage: 40MG
     Route: 063

REACTIONS (4)
  - Food allergy [Unknown]
  - Exposure via breast milk [Not Recovered/Not Resolved]
  - Milk allergy [Not Recovered/Not Resolved]
  - Laryngomalacia [Not Recovered/Not Resolved]
